FAERS Safety Report 22954147 (Version 2)
Quarter: 2023Q4

REPORT INFORMATION
  Report Type: Spontaneous
  Country: US (occurrence: US)
  Receive Date: 20230918
  Receipt Date: 20231122
  Transmission Date: 20240109
  Serious: Yes (Hospitalization)
  Sender: FDA-Public Use
  Company Number: US-BRISTOL-MYERS SQUIBB COMPANY-2023-131670

PATIENT
  Age: 81 Year
  Sex: Female
  Weight: 60.78 kg

DRUGS (2)
  1. POMALYST [Suspect]
     Active Substance: POMALIDOMIDE
     Indication: Plasma cell myeloma
     Dosage: DOSE: 3MG THEN DECREASED TO 2 MG AND FREQUENCY: ONCE A DAY FOR 21 DAYS FOLLOWED BY 7 DAYS BREAK.
     Route: 048
  2. POMALYST [Suspect]
     Active Substance: POMALIDOMIDE
     Dosage: DOSE: 3MG THEN DECREASED TO 2 MG AND FREQUENCY: ONCE A DAY FOR 21 DAYS FOLLOWED BY 7 DAYS BREAK.
     Route: 048
     Dates: start: 20230630, end: 20231030

REACTIONS (1)
  - Hospitalisation [Unknown]
